FAERS Safety Report 5769313-5 (Version None)
Quarter: 2008Q2

REPORT INFORMATION
  Report Type: 
  Country: None (occurrence: None)
  Receive Date: 20080610
  Receipt Date: 20080530
  Transmission Date: 20081010
  Serious: Yes (Other)
  Sender: FDA-Public Use
  Company Number: 2008014245

PATIENT
  Age: 43 Year
  Sex: Female
  Weight: 63.5 kg

DRUGS (1)
  1. LISTERINE WHITENING PRE-BRUSH RINSE (NO ACTIVE INGREDIENT) [Suspect]
     Indication: DENTAL CARE
     Dosage: A QUARTER OF A CAPFUL 2X PER DAY (2 IN 1 D), ORAL
     Route: 048
     Dates: start: 20080301, end: 20080428

REACTIONS (5)
  - ERYTHEMA [None]
  - LIP DRY [None]
  - ORAL DISCOMFORT [None]
  - SALIVA ALTERED [None]
  - TONGUE DISORDER [None]
